FAERS Safety Report 8988650 (Version 2)
Quarter: 2013Q1

REPORT INFORMATION
  Report Type: Spontaneous
  Country: IT (occurrence: IT)
  Receive Date: 20121228
  Receipt Date: 20130118
  Transmission Date: 20140127
  Serious: Yes (Hospitalization)
  Sender: FDA-Public Use
  Company Number: IT-PFIZER INC-2012328034

PATIENT
  Age: 40 Year
  Sex: Female

DRUGS (4)
  1. ARACYTIN [Suspect]
     Indication: ACUTE MYELOID LEUKAEMIA
     Dosage: 35 MG/M2, TOTAL
     Route: 042
     Dates: start: 20111111, end: 20120225
  2. SANDIMMUN [Concomitant]
     Indication: ACUTE MYELOID LEUKAEMIA
     Dosage: 27 MG/KG, UNK
     Route: 042
     Dates: start: 20111218, end: 20111225
  3. ETOPOSIDE-TEVA [Concomitant]
     Indication: ACUTE MYELOID LEUKAEMIA
     Dosage: 500 MG/M2, UNK
     Route: 042
     Dates: start: 20111111, end: 20111115
  4. ZAVEDOS [Concomitant]
     Indication: ACUTE MYELOID LEUKAEMIA
     Dosage: 70 MG/M2, UNK
     Route: 042
     Dates: start: 20111111, end: 20111225

REACTIONS (1)
  - Drug-induced liver injury [Recovering/Resolving]
